FAERS Safety Report 8989629 (Version 2)
Quarter: 2013Q3

REPORT INFORMATION
  Report Type: Spontaneous
  Country: US (occurrence: US)
  Receive Date: 20121228
  Receipt Date: 20130712
  Transmission Date: 20140515
  Serious: No
  Sender: FDA-Public Use
  Company Number: US-009507513-1212USA006782

PATIENT
  Sex: Female
  Weight: 73.47 kg

DRUGS (2)
  1. PEGINTRON [Suspect]
     Indication: HEPATITIS C
     Dosage: REDIPEN, 0.5 CUBIC CENTIMETRES (CC)
     Dates: start: 201212
  2. REBETOL [Suspect]
     Indication: HEPATITIS C
     Dosage: UNK
     Route: 048
     Dates: start: 201212

REACTIONS (25)
  - Asthenia [Unknown]
  - Ocular icterus [Unknown]
  - Headache [Unknown]
  - Asthenia [Unknown]
  - Somnolence [Unknown]
  - Depression [Unknown]
  - Chromaturia [Unknown]
  - Abasia [Unknown]
  - Dizziness [Unknown]
  - Dehydration [Unknown]
  - Thirst [Unknown]
  - Blood glucose abnormal [Unknown]
  - Decreased appetite [Unknown]
  - Amnesia [Unknown]
  - Nausea [Unknown]
  - Vomiting [Unknown]
  - Decreased appetite [Unknown]
  - Weight decreased [Unknown]
  - Dizziness [Unknown]
  - Dizziness [Unknown]
  - Fall [Unknown]
  - Fatigue [Unknown]
  - Memory impairment [Unknown]
  - Alopecia [Unknown]
  - Drug ineffective [Unknown]
